FAERS Safety Report 22311877 (Version 2)
Quarter: 2023Q2

REPORT INFORMATION
  Report Type: Spontaneous
  Country: JP (occurrence: JP)
  Receive Date: 20230512
  Receipt Date: 20230530
  Transmission Date: 20230721
  Serious: Yes (Hospitalization, Other)
  Sender: FDA-Public Use
  Company Number: JP-SA-2023SA145717

PATIENT
  Age: 70 Year
  Sex: Female

DRUGS (2)
  1. ENJAYMO [Suspect]
     Active Substance: SUTIMLIMAB-JOME
     Indication: Cold type haemolytic anaemia
     Dosage: DAILY DOSAGE: 6 V (VIAL)
     Route: 041
     Dates: start: 20220307
  2. ENJAYMO [Suspect]
     Active Substance: SUTIMLIMAB-JOME
     Dosage: UNK, QOW
     Route: 041
     Dates: start: 202203

REACTIONS (1)
  - Cardiac failure [Unknown]
